FAERS Safety Report 13231570 (Version 1)
Quarter: 2017Q1

REPORT INFORMATION
  Report Type: Spontaneous
  Country: US (occurrence: US)
  Receive Date: 20170214
  Receipt Date: 20170214
  Transmission Date: 20170428
  Serious: No
  Sender: FDA-Public Use
  Company Number: US-CIPLA LTD.-2016US07086

PATIENT

DRUGS (1)
  1. GABAPENTIN. [Suspect]
     Active Substance: GABAPENTIN
     Indication: INSOMNIA
     Dosage: 100 MG, BID
     Route: 048
     Dates: start: 201601, end: 201603

REACTIONS (5)
  - Off label use [Unknown]
  - Anxiety [Unknown]
  - Panic attack [Unknown]
  - Tremor [Recovered/Resolved]
  - Insomnia [Unknown]
